FAERS Safety Report 17232458 (Version 1)
Quarter: 2020Q1

REPORT INFORMATION
  Report Type: Spontaneous
  Country: US (occurrence: US)
  Receive Date: 20200103
  Receipt Date: 20200103
  Transmission Date: 20200409
  Serious: No
  Sender: FDA-Public Use
  Company Number: US-INCYTE CORPORATION-2019IN013082

PATIENT

DRUGS (1)
  1. JAKAFI [Suspect]
     Active Substance: RUXOLITINIB
     Indication: POLYCYTHAEMIA VERA
     Dosage: 15 MILLIGRAM, BID
     Route: 048
     Dates: start: 20191130

REACTIONS (5)
  - Platelet count decreased [Unknown]
  - Headache [Unknown]
  - Diarrhoea [Unknown]
  - Haemoglobin increased [Unknown]
  - White blood cell count decreased [Unknown]
